FAERS Safety Report 7422188-0 (Version None)
Quarter: 2011Q2

REPORT INFORMATION
  Report Type: 
  Country: None (occurrence: None)
  Receive Date: 20110418
  Receipt Date: 20110304
  Transmission Date: 20111010
  Serious: Yes (Hospitalization)
  Sender: FDA-Public Use
  Company Number: US-BAYER-201041430NA

PATIENT
  Age: 31 Year
  Sex: Female
  Weight: 153.74 kg

DRUGS (11)
  1. NEXIUM [Concomitant]
  2. OCELLA [Suspect]
     Indication: ACNE
  3. YASMIN [Suspect]
     Indication: ACNE
     Dosage: UNK
     Dates: start: 20050601, end: 20050901
  4. CLARINEX [Concomitant]
  5. AVANDAMET [Concomitant]
  6. AVANDIA [Concomitant]
  7. YAZ [Suspect]
     Indication: ACNE
     Dosage: UNK
     Dates: start: 20030101, end: 20050101
  8. HUMALOG [Concomitant]
  9. PREVPAC [Concomitant]
  10. METFORMIN [Concomitant]
  11. ALTACE [Concomitant]

REACTIONS (3)
  - INJURY [None]
  - PAIN [None]
  - PULMONARY EMBOLISM [None]
